FAERS Safety Report 24756559 (Version 2)
Quarter: 2025Q2

REPORT INFORMATION
  Report Type: Report from Study
  Country: CA (occurrence: CA)
  Receive Date: 20241220
  Receipt Date: 20250417
  Transmission Date: 20250716
  Serious: Yes (Other)
  Sender: ABBVIE
  Company Number: CA-ABBVIE-6052609

PATIENT
  Age: 55 Year
  Sex: Female
  Weight: 62 kg

DRUGS (2)
  1. RINVOQ [Suspect]
     Active Substance: UPADACITINIB
     Indication: Crohn^s disease
     Dosage: DRUG END DATE 2024
     Route: 048
     Dates: start: 20241022
  2. RINVOQ [Suspect]
     Active Substance: UPADACITINIB
     Indication: Crohn^s disease
     Route: 048
     Dates: start: 20250407

REACTIONS (8)
  - Intestinal resection [Unknown]
  - Short-bowel syndrome [Unknown]
  - Stoma creation [Unknown]
  - Feeling abnormal [Unknown]
  - Abdominal pain [Unknown]
  - Osteoarthritis [Unknown]
  - Tongue discomfort [Unknown]
  - Impaired work ability [Unknown]

NARRATIVE: CASE EVENT DATE: 20241210
